FAERS Safety Report 21312860 (Version 9)
Quarter: 2025Q2

REPORT INFORMATION
  Report Type: Report from Study
  Country: CA (occurrence: CA)
  Receive Date: 20220909
  Receipt Date: 20250422
  Transmission Date: 20250716
  Serious: Yes (Other)
  Sender: TAKEDA
  Company Number: CA-TAKEDA-2022TUS019877

PATIENT
  Sex: Female
  Weight: 67.585 kg

DRUGS (12)
  1. VEDOLIZUMAB [Suspect]
     Active Substance: VEDOLIZUMAB
     Indication: Colitis ulcerative
  2. VEDOLIZUMAB [Suspect]
     Active Substance: VEDOLIZUMAB
     Dosage: 300 MILLIGRAM, Q4WEEKS
     Dates: start: 20211201
  3. VEDOLIZUMAB [Suspect]
     Active Substance: VEDOLIZUMAB
     Dosage: 300 MILLIGRAM, Q4WEEKS
  4. VEDOLIZUMAB [Suspect]
     Active Substance: VEDOLIZUMAB
     Dosage: 300 MILLIGRAM, Q4WEEKS
  5. VEDOLIZUMAB [Suspect]
     Active Substance: VEDOLIZUMAB
     Dosage: 300 MILLIGRAM, Q4WEEKS
  6. VEDOLIZUMAB [Suspect]
     Active Substance: VEDOLIZUMAB
     Dosage: 300 MILLIGRAM, Q4WEEKS
  7. FRAGMIN [Concomitant]
     Active Substance: DALTEPARIN SODIUM
     Dates: start: 20211223, end: 20220901
  8. PREDNISONE [Concomitant]
     Active Substance: PREDNISONE
     Dosage: UNK UNK, Q1HR
  9. BUDESONIDE [Concomitant]
     Active Substance: BUDESONIDE
  10. HEPARIN [Concomitant]
     Active Substance: HEPARIN SODIUM
  11. DOMPERIDONE [Concomitant]
     Active Substance: DOMPERIDONE
  12. SULFATRIM [Concomitant]
     Active Substance: SULFAMETHOXAZOLE\TRIMETHOPRIM

REACTIONS (8)
  - Abortion spontaneous [Unknown]
  - Retained placenta or membranes [Unknown]
  - Basal cell carcinoma [Unknown]
  - Thrombosis [Unknown]
  - Melanocytic naevus [Unknown]
  - Maternal exposure during breast feeding [Unknown]
  - Urinary tract infection [Not Recovered/Not Resolved]
  - Pregnancy [Unknown]
